FAERS Safety Report 5583913-7 (Version None)
Quarter: 2008Q1

REPORT INFORMATION
  Report Type: 
  Country: None (occurrence: None)
  Receive Date: 20080108
  Receipt Date: 20071227
  Transmission Date: 20080703
  Serious: Yes (Other)
  Sender: FDA-Public Use
  Company Number: CA-JNJFOC-20080100033

PATIENT
  Sex: Male

DRUGS (3)
  1. EXTRA STRENGTH TYLENOL SINUS PAIN + CONGESTION DAYTIME [Suspect]
     Indication: SINUS POLYP
     Route: 048
  2. EXTRA STRENGTH TYLENOL SINUS PAIN + CONGESTION NIGHTTIME [Suspect]
     Indication: SINUS POLYP
     Route: 048
  3. NASAL SPRAY [Concomitant]
     Indication: SINUS POLYP

REACTIONS (2)
  - JOINT DISLOCATION [None]
  - PAIN IN JAW [None]
